FAERS Safety Report 21685477 (Version 1)
Quarter: 2022Q4

REPORT INFORMATION
  Report Type: Spontaneous
  Country: CN (occurrence: CN)
  Receive Date: 20221206
  Receipt Date: 20221206
  Transmission Date: 20230113
  Serious: Yes (Hospitalization)
  Sender: FDA-Public Use
  Company Number: None

PATIENT
  Age: 40 Year
  Sex: Female
  Weight: 50 kg

DRUGS (11)
  1. CYCLOPHOSPHAMIDE [Suspect]
     Active Substance: CYCLOPHOSPHAMIDE
     Indication: Targeted cancer therapy
     Dosage: 0.4 G, QD, DILUTED WITH 500 ML OF SODIUM CHLORIDE
     Route: 041
     Dates: start: 20220930, end: 20220930
  2. CYCLOPHOSPHAMIDE [Suspect]
     Active Substance: CYCLOPHOSPHAMIDE
     Indication: Neoplasm malignant
  3. SODIUM CHLORIDE [Suspect]
     Active Substance: SODIUM CHLORIDE
     Indication: Medication dilution
     Dosage: 500 ML, QD, USED TO DILUTE 0.4 G CYCLOPHOSPHAMIDE
     Route: 041
     Dates: start: 20220930, end: 20220930
  4. SODIUM CHLORIDE [Suspect]
     Active Substance: SODIUM CHLORIDE
     Dosage: 2 ML, QD, USED TO DILUTE 2 MG BORTEZOMIB
     Route: 058
     Dates: start: 20220930, end: 20220930
  5. SODIUM CHLORIDE [Suspect]
     Active Substance: SODIUM CHLORIDE
     Dosage: 2 ML, QD, USED TO DILUTE 2 MG BORTEZOMIB
     Route: 058
     Dates: start: 20221003, end: 20221003
  6. SODIUM CHLORIDE [Suspect]
     Active Substance: SODIUM CHLORIDE
     Dosage: 2 ML, QD, USED TO DILUTE 2 MG BORTEZOMIB
     Route: 058
     Dates: start: 20221007, end: 20221007
  7. SODIUM CHLORIDE [Suspect]
     Active Substance: SODIUM CHLORIDE
     Dosage: 2 ML, QD, USED TO DILUTE 2 MG BORTEZOMIB
     Route: 058
     Dates: start: 20221010, end: 20221010
  8. BORTEZOMIB [Suspect]
     Active Substance: BORTEZOMIB
     Indication: Targeted cancer therapy
     Dosage: 2 MG, QD, DILUTED WITH 2 ML OF 0.9% SODIUM CHLORIDE
     Route: 058
     Dates: start: 20220930, end: 20220930
  9. BORTEZOMIB [Suspect]
     Active Substance: BORTEZOMIB
     Indication: Neoplasm malignant
     Dosage: 2 MG, QD, DILUTED WITH 2 ML OF 0.9% SODIUM CHLORIDE
     Route: 058
     Dates: start: 20221003, end: 20221003
  10. BORTEZOMIB [Suspect]
     Active Substance: BORTEZOMIB
     Dosage: 2 MG, QD, DILUTED WITH 2 ML OF 0.9% SODIUM CHLORIDE
     Route: 058
     Dates: start: 20221007, end: 20221007
  11. BORTEZOMIB [Suspect]
     Active Substance: BORTEZOMIB
     Dosage: 2 MG, QD, DILUTED WITH 2 ML OF 0.9% SODIUM CHLORIDE
     Route: 058
     Dates: start: 20221010, end: 20221010

REACTIONS (2)
  - White blood cell count decreased [Unknown]
  - Neutrophil count decreased [Unknown]

NARRATIVE: CASE EVENT DATE: 20221112
